FAERS Safety Report 5615198-7 (Version None)
Quarter: 2008Q1

REPORT INFORMATION
  Report Type: 
  Country: None (occurrence: None)
  Receive Date: 20080206
  Receipt Date: 20080129
  Transmission Date: 20080703
  Serious: Yes (Other)
  Sender: FDA-Public Use
  Company Number: PHEH2007US09830

PATIENT
  Age: 65 Year
  Sex: Male

DRUGS (5)
  1. ZOMETA [Suspect]
     Indication: METASTASES TO BONE
     Dosage: ONCE MONTHLY
     Dates: start: 20050520, end: 20070502
  2. TAXOTERE [Concomitant]
     Indication: PROSTATE CANCER
     Dosage: 75 MG/M2, UNK
     Dates: start: 20070726
  3. CHEMOTHERAPEUTICS NOS [Concomitant]
  4. PREDNISONE TAB [Concomitant]
     Indication: PROSTATE CANCER
     Dosage: 5 MG, UNK
     Dates: start: 20070726
  5. ZOLADEX [Concomitant]
     Indication: PROSTATE CANCER
     Dosage: 10.8 MG, UNK

REACTIONS (10)
  - ARTIFICIAL CROWN PROCEDURE [None]
  - BONE DISORDER [None]
  - GINGIVAL INFECTION [None]
  - LYMPHADENOPATHY [None]
  - OSTEOMYELITIS [None]
  - OSTEONECROSIS [None]
  - PAIN [None]
  - SOFT TISSUE INFECTION [None]
  - SWELLING [None]
  - TOOTH DISORDER [None]
